FAERS Safety Report 24396579 (Version 1)
Quarter: 2024Q4

REPORT INFORMATION
  Report Type: Spontaneous
  Country: CN (occurrence: CN)
  Receive Date: 20241004
  Receipt Date: 20241004
  Transmission Date: 20250115
  Serious: Yes (Life-Threatening)
  Sender: MERCK
  Company Number: CN-009507513-2410CHN000216

PATIENT
  Age: 69 Year
  Sex: Female

DRUGS (3)
  1. KEYTRUDA [Suspect]
     Active Substance: PEMBROLIZUMAB
     Indication: Lung neoplasm
     Dosage: DOSE: 200 MG, FREQUENCY: ONCE[DOSE AND FREQUENCY ALSO REPORTED AS 200 MG, D1, 21 D/CYCLE
     Route: 041
     Dates: start: 20240828, end: 20240828
  2. PEMETREXED DISODIUM [Suspect]
     Active Substance: PEMETREXED DISODIUM
     Indication: Lung neoplasm
     Dosage: DOSE: 0.75 G, FREQUENCY: ONCE [DOSE AND FREQUENCY ALSO REPORTED AS 750 MG, D1, 21 D/CYCLE]
     Route: 041
     Dates: start: 20240829, end: 20240829
  3. CISPLATIN [Suspect]
     Active Substance: CISPLATIN
     Indication: Lung neoplasm
     Dosage: DOSE: 100 MG, FREQUENCY: ONCE [DOSE AND FREQUENCY ALSO REPORTED AS 120 MG, D1, 21 D/CYCLE, CONFLICTI
     Route: 041
     Dates: start: 20240828, end: 20240828

REACTIONS (4)
  - Neutrophil count decreased [Recovering/Resolving]
  - White blood cell count decreased [Unknown]
  - Haemoglobin decreased [Unknown]
  - Platelet count decreased [Unknown]

NARRATIVE: CASE EVENT DATE: 20240909
